FAERS Safety Report 9396904 (Version 1)
Quarter: 2013Q3

REPORT INFORMATION
  Report Type: Spontaneous
  Country: US (occurrence: None)
  Receive Date: 20130710
  Receipt Date: 20130710
  Transmission Date: 20140515
  Serious: Yes (Life-Threatening, Hospitalization)
  Sender: FDA-Public Use
  Company Number: None

PATIENT
  Age: 80 Year
  Sex: Male
  Weight: 114.3 kg

DRUGS (2)
  1. ZOSYN [Suspect]
     Indication: CELLULITIS
     Dosage: 3.375 GM Q8H IV
     Route: 042
     Dates: start: 20130617, end: 20130619
  2. TAZOBACTAM [Suspect]
     Dates: start: 20130620, end: 20130626

REACTIONS (3)
  - Platelet dysfunction [None]
  - Diverticulum [None]
  - Injection site haemorrhage [None]
